FAERS Safety Report 9433773 (Version 1)
Quarter: 2013Q3

REPORT INFORMATION
  Report Type: Spontaneous
  Country: US (occurrence: US)
  Receive Date: 20130731
  Receipt Date: 20130731
  Transmission Date: 20140515
  Serious: Yes (Other)
  Sender: FDA-Public Use
  Company Number: CHPA2013US012097

PATIENT
  Age: 93 Year
  Sex: Female

DRUGS (1)
  1. GAS-X CHEWABLE TABLETS PEPPERMINT CREME [Suspect]
     Indication: FLATULENCE
     Dosage: UNK, UNK
     Route: 048

REACTIONS (3)
  - Neuropathy peripheral [Not Recovered/Not Resolved]
  - Abdominal distension [Unknown]
  - Abdominal pain upper [Unknown]
